FAERS Safety Report 6920994-X (Version None)
Quarter: 2010Q3

REPORT INFORMATION
  Report Type: 
  Country: None (occurrence: None)
  Receive Date: 20100812
  Receipt Date: 20100709
  Transmission Date: 20110219
  Serious: Yes (Death, Other)
  Sender: FDA-Public Use
  Company Number: JP-ROCHE-639803

PATIENT
  Sex: Male

DRUGS (11)
  1. MYCOPHENOLATE MOFETIL [Suspect]
     Indication: PROPHYLAXIS AGAINST TRANSPLANT REJECTION
     Route: 048
     Dates: start: 20061029, end: 20061217
  2. MYCOPHENOLATE MOFETIL [Suspect]
     Route: 048
     Dates: start: 20061218, end: 20070315
  3. MYCOPHENOLATE MOFETIL [Suspect]
     Route: 048
     Dates: start: 20070330, end: 20070630
  4. VALGANCICLOVIR [Suspect]
     Indication: PROPHYLAXIS AGAINST TRANSPLANT REJECTION
     Route: 048
     Dates: start: 20061114, end: 20070419
  5. PROGRAF [Suspect]
     Indication: PRODUCT USED FOR UNKNOWN INDICATION
     Dosage: DRUG: TACROLIMUS HYDRATE.
     Route: 048
     Dates: start: 20061029, end: 20061216
  6. PROGRAF [Suspect]
     Route: 048
     Dates: start: 20061217, end: 20070218
  7. PROGRAF [Suspect]
     Route: 048
     Dates: start: 20070219, end: 20070314
  8. PROGRAF [Suspect]
     Route: 048
     Dates: start: 20070315, end: 20070418
  9. PROGRAF [Suspect]
     Route: 048
     Dates: start: 20070419, end: 20070420
  10. PROGRAF [Suspect]
     Route: 048
     Dates: start: 20070421, end: 20070511
  11. PREDONINE [Suspect]
     Indication: PRODUCT USED FOR UNKNOWN INDICATION
     Route: 048
     Dates: start: 20061029, end: 20070602

REACTIONS (4)
  - CYTOMEGALOVIRUS INFECTION [None]
  - EMBOLISM ARTERIAL [None]
  - LYMPHOMA [None]
  - WHITE BLOOD CELL COUNT DECREASED [None]
